FAERS Safety Report 15621802 (Version 1)
Quarter: 2018Q4

REPORT INFORMATION
  Report Type: Spontaneous
  Country: US (occurrence: US)
  Receive Date: 20181115
  Receipt Date: 20181115
  Transmission Date: 20190205
  Serious: No
  Sender: FDA-Public Use
  Company Number: US-PFIZER INC-2018456539

PATIENT
  Age: 52 Year
  Sex: Male
  Weight: 88.44 kg

DRUGS (1)
  1. ADVIL [Suspect]
     Active Substance: IBUPROFEN
     Indication: MYALGIA
     Dosage: 2 DF, EVERY 4-6 HOURS (2 LIQUIGELS EVERY 4-6 HOURS, AS NEEDED)
     Route: 048
     Dates: start: 20181030

REACTIONS (2)
  - Nausea [Recovered/Resolved]
  - Dyspepsia [Recovered/Resolved]

NARRATIVE: CASE EVENT DATE: 20181030
